FAERS Safety Report 22216308 (Version 1)
Quarter: 2023Q2

REPORT INFORMATION
  Report Type: Spontaneous
  Country: US (occurrence: US)
  Receive Date: 20230417
  Receipt Date: 20230417
  Transmission Date: 20230722
  Serious: No
  Sender: FDA-Public Use
  Company Number: US-BIOGEN-2022BI01166031

PATIENT
  Sex: Female

DRUGS (17)
  1. VUMERITY [Suspect]
     Active Substance: DIROXIMEL FUMARATE
     Indication: Multiple sclerosis
     Dosage: STARTER DOSE
     Route: 050
     Dates: start: 20210719
  2. VUMERITY [Suspect]
     Active Substance: DIROXIMEL FUMARATE
     Dosage: MAINTENANCE DOSE
     Route: 050
  3. LEVOTHYROXINE SODIUM [Concomitant]
     Active Substance: LEVOTHYROXINE SODIUM
     Route: 050
  4. GABAPENTIN [Concomitant]
     Active Substance: GABAPENTIN
     Route: 050
  5. FLONASE [Concomitant]
     Active Substance: FLUTICASONE PROPIONATE
     Route: 050
  6. ALLERGY RELIEF [Concomitant]
     Route: 050
  7. LORATADINE [Concomitant]
     Active Substance: LORATADINE
     Route: 050
  8. PROVENTIL [Concomitant]
     Active Substance: ALBUTEROL
     Route: 050
  9. METFORMIN HYDROCHLORIDE [Concomitant]
     Active Substance: METFORMIN HYDROCHLORIDE
     Route: 050
  10. ARMODAFINIL [Concomitant]
     Active Substance: ARMODAFINIL
     Route: 050
  11. ESCITALOPRAM OXALATE [Concomitant]
     Active Substance: ESCITALOPRAM OXALATE
     Route: 050
  12. LISINOPRIL AND HYDROCHLOROTHIAZIDE [Concomitant]
     Active Substance: HYDROCHLOROTHIAZIDE\LISINOPRIL
     Route: 050
  13. VITAMIN D3 [Concomitant]
     Active Substance: CHOLECALCIFEROL
     Route: 050
  14. FISH OIL [Concomitant]
     Active Substance: FISH OIL
     Route: 050
  15. PANTOPRAZOLE SODIUM [Concomitant]
     Active Substance: PANTOPRAZOLE SODIUM
     Route: 050
  16. PROGESTERONE [Concomitant]
     Active Substance: PROGESTERONE
     Route: 050
  17. ESTRADIOL [Concomitant]
     Active Substance: ESTRADIOL
     Route: 050

REACTIONS (2)
  - Product dose omission issue [Unknown]
  - Flushing [Unknown]
